FAERS Safety Report 5799443-3 (Version None)
Quarter: 2008Q3

REPORT INFORMATION
  Report Type: 
  Country: None (occurrence: None)
  Receive Date: 20080703
  Receipt Date: 20080702
  Transmission Date: 20090109
  Serious: Yes (Hospitalization)
  Sender: FDA-Public Use
  Company Number: JP-BRISTOL-MYERS SQUIBB COMPANY-13572797

PATIENT
  Age: 60 Year
  Sex: Male

DRUGS (4)
  1. EFAVIRENZ [Suspect]
     Indication: HIV INFECTION
     Route: 048
     Dates: start: 20060712, end: 20060718
  2. STAVUDINE [Suspect]
     Indication: HIV INFECTION
     Route: 048
     Dates: start: 20060712, end: 20060718
  3. LAMIVUDINE [Suspect]
     Indication: HIV INFECTION
     Route: 048
     Dates: start: 20060712, end: 20060718
  4. LOPINAVIR AND RITONAVIR [Concomitant]

REACTIONS (7)
  - ANXIETY [None]
  - FATIGUE [None]
  - HYPOREFLEXIA [None]
  - INSOMNIA [None]
  - MALAISE [None]
  - NAUSEA [None]
  - NIGHTMARE [None]
